FAERS Safety Report 5715449-4 (Version None)
Quarter: 2008Q2

REPORT INFORMATION
  Report Type: 
  Country: None (occurrence: None)
  Receive Date: 20080422
  Receipt Date: 20080410
  Transmission Date: 20081010
  Serious: Yes (Other)
  Sender: FDA-Public Use
  Company Number: 233417J08USA

PATIENT
  Age: 42 Year
  Sex: Female

DRUGS (4)
  1. REBIF [Suspect]
     Indication: MULTIPLE SCLEROSIS
     Dosage: 44 MCG, 3 IN 1 WEEKS, SUBCUTANEOUS
  2. BIRTH CONTROL(HORMONAL CONTRACEPTIVES FOR SYSTEMIC USE) [Concomitant]
  3. LEXAPRO [Concomitant]
  4. PROVIGIL [Concomitant]

REACTIONS (1)
  - APPENDICITIS [None]
